FAERS Safety Report 6184092-8 (Version None)
Quarter: 2009Q2

REPORT INFORMATION
  Report Type: 
  Country: None (occurrence: None)
  Receive Date: 20090508
  Receipt Date: 20090504
  Transmission Date: 20091009
  Serious: Yes (Life-Threatening, Hospitalization, Other)
  Sender: FDA-Public Use
  Company Number: US-CELGENEUS-163-21880-08050789

PATIENT
  Sex: Female

DRUGS (6)
  1. REVLIMID [Suspect]
     Indication: MULTIPLE MYELOMA
     Route: 048
     Dates: start: 20070620, end: 20070702
  2. REVLIMID [Suspect]
     Route: 048
     Dates: start: 20080205, end: 20080506
  3. COUMADIN [Concomitant]
     Indication: PULMONARY EMBOLISM
     Dosage: VARIABLE DOSE
     Route: 065
     Dates: start: 20070702, end: 20081121
  4. COUMADIN [Concomitant]
  5. ARIXTRA [Concomitant]
     Indication: PULMONARY EMBOLISM
     Route: 065
     Dates: start: 20081121
  6. ARIXTRA [Concomitant]

REACTIONS (5)
  - ABDOMINAL WALL HAEMORRHAGE [None]
  - DEEP VEIN THROMBOSIS [None]
  - GASTROINTESTINAL HAEMORRHAGE [None]
  - PANCYTOPENIA [None]
  - PULMONARY EMBOLISM [None]
